FAERS Safety Report 5257448-5 (Version None)
Quarter: 2007Q1

REPORT INFORMATION
  Report Type: 
  Country: None (occurrence: None)
  Receive Date: 20070307
  Receipt Date: 20060817
  Transmission Date: 20070707
  Serious: No
  Sender: FDA-Public Use
  Company Number: US-GLAXOSMITHKLINE-A0615088A

PATIENT
  Age: 58 Year
  Sex: Female
  Weight: 68.2 kg

DRUGS (4)
  1. REQUIP [Suspect]
     Indication: RESTLESS LEGS SYNDROME
     Dosage: 1.25MG VARIABLE DOSE
     Route: 048
  2. EFFEXOR [Concomitant]
     Indication: DEPRESSION
     Route: 048
     Dates: start: 20040201
  3. FOSAMAX [Concomitant]
     Dosage: 70MG WEEKLY
     Route: 065
  4. ATIVAN [Concomitant]
     Dosage: .5MG PER DAY
     Route: 048

REACTIONS (1)
  - RESTLESS LEGS SYNDROME [None]
